FAERS Safety Report 8817858 (Version 2)
Quarter: 2012Q4

REPORT INFORMATION
  Report Type: Report from Study
  Country: DE (occurrence: DE)
  Receive Date: 20121004
  Receipt Date: 20121129
  Transmission Date: 20130627
  Serious: Yes (Death, Hospitalization)
  Sender: FDA-Public Use
  Company Number: DE-ROCHE-1139871

PATIENT
  Sex: Female
  Weight: 51 kg

DRUGS (11)
  1. METHOXY POLYETHYLENE GLYCOL-EPOETIN BETA [Suspect]
     Indication: NEPHROGENIC ANAEMIA
     Dosage: drug recieved prior to SAE on 08/Sep/2011
     Route: 042
     Dates: start: 20100909
  2. FERRLECIT [Suspect]
     Indication: PRODUCT USED FOR UNKNOWN INDICATION
     Route: 065
     Dates: start: 20100907
  3. VITAMIN B12 [Concomitant]
     Route: 065
  4. DEKRISTOL [Concomitant]
     Route: 065
     Dates: start: 20110126
  5. ASS100 [Concomitant]
     Route: 065
     Dates: start: 20100607
  6. PREDNISOLONE [Concomitant]
     Route: 065
     Dates: start: 20100607
  7. QUENSYL [Concomitant]
     Route: 065
     Dates: start: 20100607
  8. DREISAVIT N [Concomitant]
     Route: 065
     Dates: start: 20100617
  9. PANTOPRAZOL [Concomitant]
     Route: 065
     Dates: start: 20100706
  10. SALOFALK [Concomitant]
     Route: 065
     Dates: start: 20100720
  11. AMLODIPIN [Concomitant]

REACTIONS (1)
  - Death [Fatal]
